FAERS Safety Report 13449663 (Version 2)
Quarter: 2017Q2

REPORT INFORMATION
  Report Type: Spontaneous
  Country: US (occurrence: US)
  Receive Date: 20170417
  Receipt Date: 20170628
  Transmission Date: 20170830
  Serious: No
  Sender: FDA-Public Use
  Company Number: US-ELI_LILLY_AND_COMPANY-US201704004122

PATIENT
  Sex: Female

DRUGS (2)
  1. ZYPREXA [Suspect]
     Active Substance: OLANZAPINE
     Indication: TRICHOTILLOMANIA
     Dosage: 5 MG, QD
     Route: 048
  2. OLANZAPINE. [Suspect]
     Active Substance: OLANZAPINE
     Indication: TRICHOTILLOMANIA
     Dosage: 5 MG, DAILY
     Route: 048

REACTIONS (2)
  - Weight increased [Unknown]
  - Joint swelling [Not Recovered/Not Resolved]
